FAERS Safety Report 4413512-1 (Version None)
Quarter: 2004Q3

REPORT INFORMATION
  Report Type: 
  Country: None (occurrence: None)
  Receive Date: 20040728
  Receipt Date: 20040714
  Transmission Date: 20050211
  Serious: Yes (Death, Hospitalization)
  Sender: FDA-Public Use
  Company Number: USA040671248

PATIENT
  Age: 68 Year
  Sex: Male
  Weight: 86 kg

DRUGS (7)
  1. GEMZAR [Suspect]
     Indication: NON-SMALL CELL LUNG CANCER STAGE IV
     Dosage: 2178 MG
     Dates: start: 20040623
  2. LISINOPRIL [Concomitant]
  3. ASPIRIN [Concomitant]
  4. MULTI-VITAMIN [Concomitant]
  5. DECADRON [Concomitant]
  6. COMPAZINE [Concomitant]
  7. MORPHINE SULFATE [Concomitant]

REACTIONS (3)
  - DYSPNOEA [None]
  - HYPOTENSION [None]
  - OEDEMA PERIPHERAL [None]
